FAERS Safety Report 10210156 (Version 2)
Quarter: 2014Q2

REPORT INFORMATION
  Report Type: Spontaneous
  Country: ES (occurrence: ES)
  Receive Date: 20140602
  Receipt Date: 20140618
  Transmission Date: 20141212
  Serious: Yes (Other)
  Sender: FDA-Public Use
  Company Number: ES-ROCHE-1409338

PATIENT
  Age: 36 Year
  Sex: Male

DRUGS (2)
  1. RIVOTRIL [Suspect]
     Indication: TREMOR
     Route: 048
     Dates: start: 20130717
  2. COPAXONE [Suspect]
     Indication: MULTIPLE SCLEROSIS
     Route: 058
     Dates: start: 20090617, end: 20140517

REACTIONS (3)
  - Overdose [Unknown]
  - Skin reaction [Recovered/Resolved]
  - Pyrexia [Recovered/Resolved]
